FAERS Safety Report 18464153 (Version 1)
Quarter: 2020Q4

REPORT INFORMATION
  Report Type: Report from Study
  Country: FR (occurrence: FR)
  Receive Date: 20201104
  Receipt Date: 20201104
  Transmission Date: 20210114
  Serious: Yes (Other)
  Sender: FDA-Public Use
  Company Number: FR-JAZZ-2020-FR-005960

PATIENT

DRUGS (2)
  1. DEFITELIO [Suspect]
     Active Substance: DEFIBROTIDE SODIUM
     Dosage: 28 MILLIGRAM/KILOGRAM/DAY
     Route: 042
     Dates: start: 2020, end: 20200424
  2. DEFITELIO [Suspect]
     Active Substance: DEFIBROTIDE SODIUM
     Indication: VENOOCCLUSIVE LIVER DISEASE
     Dosage: 25 MILLIGRAM/ KG/DAY
     Route: 042
     Dates: start: 20200212, end: 2020

REACTIONS (3)
  - Disease recurrence [Unknown]
  - Off label use [Unknown]
  - Venoocclusive liver disease [Unknown]

NARRATIVE: CASE EVENT DATE: 20200212
